FAERS Safety Report 6521850-1 (Version None)
Quarter: 2009Q4

REPORT INFORMATION
  Report Type: 
  Country: None (occurrence: None)
  Receive Date: 20091230
  Receipt Date: 20091223
  Transmission Date: 20100525
  Serious: Yes (Death)
  Sender: FDA-Public Use
  Company Number: US-ASTRAZENECA-2009SE29810

PATIENT
  Sex: Male

DRUGS (4)
  1. SYMBICORT [Suspect]
     Indication: DYSPNOEA
     Dosage: 160/4.5 MCG
     Route: 055
     Dates: start: 20090601
  2. COMBIVENT [Concomitant]
  3. MORPHINE DROPS [Concomitant]
  4. NEBULIZER TX [Concomitant]

REACTIONS (1)
  - SKIN CANCER [None]
